FAERS Safety Report 7737791-8 (Version None)
Quarter: 2011Q3

REPORT INFORMATION
  Report Type: 
  Country: None (occurrence: None)
  Receive Date: 20110908
  Receipt Date: 20110825
  Transmission Date: 20111222
  Serious: Yes (Hospitalization, Other)
  Sender: FDA-Public Use
  Company Number: PHHY2011BR48167

PATIENT
  Sex: Female

DRUGS (1)
  1. DIOVAN [Suspect]
     Indication: HYPERTENSION
     Dosage: 160 MG, 01 TABLET DAILY
     Dates: end: 20110601

REACTIONS (3)
  - INFARCTION [None]
  - MALAISE [None]
  - BLOOD PRESSURE FLUCTUATION [None]
